FAERS Safety Report 6163341-6 (Version None)
Quarter: 2009Q2

REPORT INFORMATION
  Report Type: 
  Country: None (occurrence: None)
  Receive Date: 20090420
  Receipt Date: 20090420
  Transmission Date: 20091009
  Serious: No
  Sender: FDA-Public Use
  Company Number: None

PATIENT
  Age: 59 Year
  Sex: Male
  Weight: 65.3 kg

DRUGS (11)
  1. VARENICLINE [Suspect]
     Indication: SMOKING CESSATION THERAPY
     Dosage: 1 MG BID PO
     Route: 048
     Dates: start: 20070815, end: 20071120
  2. CIPROFLOXACIN [Concomitant]
  3. DOXYCYCLINE [Concomitant]
  4. FREESTYLE BLOOD GLUCOMETER [Concomitant]
  5. FREESTYLE BLOOD GLUCOSE TEST STRIP [Concomitant]
  6. KETOROLAC INJ [Concomitant]
  7. LORATADINE [Concomitant]
  8. LORAZEPAM [Concomitant]
  9. MICONAZOLE TOPICAL TINCTURE [Concomitant]
  10. MOXIFLOXACIN HCL [Concomitant]
  11. TAMSULOSIN HCL [Concomitant]

REACTIONS (1)
  - ABNORMAL DREAMS [None]
